FAERS Safety Report 9383112 (Version 1)
Quarter: 2013Q3

REPORT INFORMATION
  Report Type: Spontaneous
  Country: US (occurrence: US)
  Receive Date: 20130704
  Receipt Date: 20130704
  Transmission Date: 20140515
  Serious: Yes (Other)
  Sender: FDA-Public Use
  Company Number: CHPA2013US010625

PATIENT
  Age: 43 Year
  Sex: Female

DRUGS (1)
  1. CONTROL PLP [Suspect]
     Indication: SMOKING CESSATION THERAPY
     Dosage: 21 MG, QD
     Route: 062
     Dates: start: 20130624, end: 20130630

REACTIONS (8)
  - Pharyngeal oedema [Recovered/Resolved]
  - Nasal congestion [Recovering/Resolving]
  - Panic reaction [Recovered/Resolved]
  - Feeling abnormal [Recovered/Resolved]
  - Heart rate increased [Recovered/Resolved]
  - Depressed mood [Recovered/Resolved]
  - Malaise [Recovered/Resolved]
  - Dizziness [Recovered/Resolved]
